FAERS Safety Report 9617437 (Version 1)
Quarter: 2013Q4

REPORT INFORMATION
  Report Type: Spontaneous
  Country: US (occurrence: US)
  Receive Date: 20131011
  Receipt Date: 20131011
  Transmission Date: 20140711
  Serious: Yes (Other)
  Sender: FDA-Public Use
  Company Number: US-JNJFOC-20131001808

PATIENT
  Sex: Male

DRUGS (3)
  1. DURAGESIC [Suspect]
     Indication: PRODUCT USED FOR UNKNOWN INDICATION
     Route: 062
  2. MYLAN FENTANYL TRANSDERMAL SYSTEM [Suspect]
     Indication: PRODUCT USED FOR UNKNOWN INDICATION
     Route: 062
  3. MALLINCKRODT FENTANYL PATCHES [Suspect]
     Indication: PRODUCT USED FOR UNKNOWN INDICATION
     Route: 062

REACTIONS (5)
  - Suicidal ideation [Unknown]
  - Withdrawal syndrome [Unknown]
  - Pain [Unknown]
  - Product quality issue [Unknown]
  - Drug effect decreased [Unknown]
